FAERS Safety Report 5519548-1 (Version None)
Quarter: 2007Q4

REPORT INFORMATION
  Report Type: 
  Country: None (occurrence: None)
  Receive Date: 20071116
  Receipt Date: 20071113
  Transmission Date: 20080405
  Serious: Yes (Other)
  Sender: FDA-Public Use
  Company Number: B0494984A

PATIENT
  Sex: Male
  Weight: 66 kg

DRUGS (1)
  1. AVANDAMET [Suspect]
     Route: 048
     Dates: start: 20060428

REACTIONS (2)
  - ANGINA UNSTABLE [None]
  - CARDIAC FAILURE [None]
